FAERS Safety Report 9524935 (Version 1)
Quarter: 2013Q3

REPORT INFORMATION
  Report Type: Spontaneous
  Country: US (occurrence: None)
  Receive Date: 20130912
  Receipt Date: 20130912
  Transmission Date: 20140520
  Serious: Yes (Other)
  Sender: FDA-Public Use
  Company Number: AUR-APL-2013-07572

PATIENT
  Age: 66 Year
  Sex: Female
  Weight: 90.7 kg

DRUGS (4)
  1. METFORMIN (METFORMIN) [Suspect]
     Indication: DIABETES MELLITUS
  2. NORPACE (DISOPYRAMIDE PHOSPHATE) [Suspect]
     Indication: BLOOD PRESSURE INCREASED
     Dosage: 300 MG (150 MG, 2 IN 1 D)
  3. PREDNISONE (PREDNISONE) [Suspect]
     Indication: ALLERGY TO ANIMAL
  4. CARTIA XT (DILTIAZEM HYDROCHLORIDE) [Suspect]
     Indication: ATRIAL FIBRILLATION

REACTIONS (5)
  - Alopecia [None]
  - Vitamin D decreased [None]
  - Blood calcium increased [None]
  - Diabetes mellitus [None]
  - Malaise [None]
